FAERS Safety Report 8292096-4 (Version None)
Quarter: 2012Q2

REPORT INFORMATION
  Report Type: 
  Country: None (occurrence: None)
  Receive Date: 20120417
  Receipt Date: 20111019
  Transmission Date: 20120825
  Serious: No
  Sender: FDA-Public Use
  Company Number: US-ASTRAZENECA-2011SE00950

PATIENT
  Age: 44 Year
  Sex: Female
  Weight: 87.4 kg

DRUGS (4)
  1. NEXIUM [Suspect]
     Route: 048
  2. LEVOTHYROXINE SODIUM [Concomitant]
  3. LISINOPRIL [Concomitant]
  4. VITAMIN D [Concomitant]

REACTIONS (4)
  - BARRETT'S OESOPHAGUS [None]
  - HIATUS HERNIA [None]
  - DRUG DOSE OMISSION [None]
  - METAPLASIA [None]
